FAERS Safety Report 7880607-X (Version None)
Quarter: 2011Q4

REPORT INFORMATION
  Report Type: 
  Country: None (occurrence: None)
  Receive Date: 20111101
  Receipt Date: 20111024
  Transmission Date: 20120403
  Serious: Yes (Other)
  Sender: FDA-Public Use
  Company Number: CA-ROCHE-GNE320366

PATIENT

DRUGS (2)
  1. LUCENTIS [Suspect]
     Indication: AGE-RELATED MACULAR DEGENERATION
     Route: 050
     Dates: start: 20080517
  2. VITALUX [Concomitant]

REACTIONS (8)
  - VITREOUS DISORDER [None]
  - ENDOPHTHALMITIS [None]
  - EYE INFECTION STAPHYLOCOCCAL [None]
  - OCULAR HYPERAEMIA [None]
  - EYE PAIN [None]
  - PHOTOPHOBIA [None]
  - VITREOUS FLOATERS [None]
  - INTRAOCULAR PRESSURE DECREASED [None]
